FAERS Safety Report 22142706 (Version 2)
Quarter: 2023Q2

REPORT INFORMATION
  Report Type: Spontaneous
  Country: US (occurrence: US)
  Receive Date: 20230327
  Receipt Date: 20230404
  Transmission Date: 20230721
  Serious: Yes (Other)
  Sender: FDA-Public Use
  Company Number: US-BAYER-2023A036010

PATIENT
  Age: 74 Year
  Sex: Male

DRUGS (2)
  1. ADEMPAS [Suspect]
     Active Substance: RIOCIGUAT
     Indication: Product used for unknown indication
     Dosage: UNK
     Route: 048
  2. MACITENTAN [Suspect]
     Active Substance: MACITENTAN
     Indication: Product used for unknown indication
     Dosage: 10 MG
     Dates: start: 20220322

REACTIONS (5)
  - Pulmonary hypertension [None]
  - Coronary artery bypass [None]
  - Arterial bypass operation [None]
  - Peripheral swelling [None]
  - Stress [None]

NARRATIVE: CASE EVENT DATE: 20230118
